FAERS Safety Report 7197694-7 (Version None)
Quarter: 2010Q4

REPORT INFORMATION
  Report Type: 
  Country: None (occurrence: None)
  Receive Date: 20101210
  Receipt Date: 20101207
  Transmission Date: 20110411
  Serious: Yes (Hospitalization, Other)
  Sender: FDA-Public Use
  Company Number: 2009-200464-NL

PATIENT
  Age: 30 Year
  Sex: Female
  Weight: 72.5755 kg

DRUGS (10)
  1. NUVARING [Suspect]
     Indication: BACK PAIN
     Dosage: 1 DF
     Dates: start: 20060101, end: 20080301
  2. NUVARING [Suspect]
     Indication: CONTRACEPTION
     Dosage: 1 DF
     Dates: start: 20060101, end: 20080301
  3. NUVARING [Suspect]
     Indication: IRRITABLE BOWEL SYNDROME
     Dosage: 1 DF
     Dates: start: 20060101, end: 20080301
  4. XANAX [Concomitant]
  5. ADVIL [Concomitant]
  6. SKELAXIN [Concomitant]
  7. AMOXICILLIN [Concomitant]
  8. BACLOFEN [Concomitant]
  9. LEXAPRO [Concomitant]
  10. NORCO [Concomitant]

REACTIONS (13)
  - ACUTE SINUSITIS [None]
  - ANXIETY [None]
  - BACK PAIN [None]
  - COOMBS DIRECT TEST POSITIVE [None]
  - FACE INJURY [None]
  - HEADACHE [None]
  - HYPOKALAEMIA [None]
  - IRRITABLE BOWEL SYNDROME [None]
  - PHARYNGITIS STREPTOCOCCAL [None]
  - PLEURAL EFFUSION [None]
  - PULMONARY EMBOLISM [None]
  - RECTAL HAEMORRHAGE [None]
  - SYNCOPE [None]
